FAERS Safety Report 11213008 (Version 1)
Quarter: 2015Q2

REPORT INFORMATION
  Report Type: Report from Study
  Country: US (occurrence: US)
  Receive Date: 20150623
  Receipt Date: 20150623
  Transmission Date: 20150821
  Serious: Yes (Other)
  Sender: FDA-Public Use
  Company Number: US-ABBVIE-15P-163-1409994-00

PATIENT
  Sex: Female
  Weight: 96.7 kg

DRUGS (2)
  1. LUPRON DEPOT [Suspect]
     Active Substance: LEUPROLIDE ACETATE
     Route: 030
     Dates: start: 20150509
  2. LUPRON DEPOT [Suspect]
     Active Substance: LEUPROLIDE ACETATE
     Indication: ENDOMETRIOSIS
     Route: 030
     Dates: start: 2009, end: 2009

REACTIONS (4)
  - Hot flush [Recovered/Resolved]
  - Mass [Recovered/Resolved]
  - Vaginal cyst [Recovering/Resolving]
  - Endometriosis [Not Recovered/Not Resolved]

NARRATIVE: CASE EVENT DATE: 2009
